FAERS Safety Report 8448256-2 (Version None)
Quarter: 2012Q2

REPORT INFORMATION
  Report Type: 
  Country: None (occurrence: None)
  Receive Date: 20120619
  Receipt Date: 20111014
  Transmission Date: 20120825
  Serious: No
  Sender: FDA-Public Use
  Company Number: US-FOUGERA-2012FO001128

PATIENT
  Age: 54 Year
  Sex: Male

DRUGS (2)
  1. IMIQUIMOD [Suspect]
     Indication: ANOGENITAL WARTS
     Route: 061
     Dates: start: 20111003, end: 20111010
  2. AVODART [Concomitant]

REACTIONS (3)
  - MYALGIA [None]
  - APPLICATION SITE VESICLES [None]
  - CHILLS [None]
